FAERS Safety Report 18724820 (Version 3)
Quarter: 2021Q1

REPORT INFORMATION
  Report Type: Spontaneous
  Country: US (occurrence: US)
  Receive Date: 20210111
  Receipt Date: 20210216
  Transmission Date: 20210419
  Serious: No
  Sender: FDA-Public Use
  Company Number: US-PFIZER INC-2021006427

PATIENT
  Age: 51 Year
  Sex: Female
  Weight: 83.91 kg

DRUGS (1)
  1. NICOTROL [Suspect]
     Active Substance: NICOTINE
     Indication: SMOKING CESSATION THERAPY
     Dosage: UNK (USE AS DIRECTED, UP TO 16 CARTRIDGES A DAY)
     Dates: start: 20210104

REACTIONS (1)
  - Drug ineffective [Unknown]
